FAERS Safety Report 4280830-X (Version None)
Quarter: 2004Q1

REPORT INFORMATION
  Report Type: 
  Country: None (occurrence: None)
  Receive Date: 20040128
  Receipt Date: 20040128
  Transmission Date: 20041129
  Serious: Yes (Death, Life-Threatening, Hospitalization)
  Sender: FDA-Public Use
  Company Number: None

PATIENT
  Sex: Female

DRUGS (2)
  1. IODINE - 131 [Suspect]
     Indication: GLIOBLASTOMA MULTIFORME
     Dosage: 100 MCI
     Dates: start: 20031009
  2. MURINE 81C6 (BB-IND-2692) [Suspect]
     Indication: GLIOBLASTOMA MULTIFORME
     Dosage: 20 MG
     Dates: start: 20031009

REACTIONS (7)
  - CONFUSIONAL STATE [None]
  - HEADACHE [None]
  - LETHARGY [None]
  - MENINGISM [None]
  - MUSCULAR WEAKNESS [None]
  - NEOPLASM PROGRESSION [None]
  - URINARY INCONTINENCE [None]
